FAERS Safety Report 4317724-7 (Version None)
Quarter: 2004Q1

REPORT INFORMATION
  Report Type: 
  Country: None (occurrence: None)
  Receive Date: 20040315
  Receipt Date: 20040309
  Transmission Date: 20041129
  Serious: Yes (Life-Threatening)
  Sender: FDA-Public Use
  Company Number: US-BRISTOL-MYERS SQUIBB COMPANY-12528691

PATIENT
  Age: 48 Year
  Sex: Male
  Weight: 77 kg

DRUGS (6)
  1. EFAVIRENZ [Suspect]
     Indication: HIV INFECTION
     Route: 048
     Dates: start: 20010629
  2. STAVUDINE [Suspect]
     Indication: HIV INFECTION
     Route: 048
     Dates: start: 19990201
  3. LAMIVUDINE [Suspect]
     Indication: HIV INFECTION
     Route: 048
     Dates: start: 19990201
  4. GABAPENTIN [Concomitant]
     Dosage: DAILY DOSE WAS INCREASED TO 600 MG X 3 ON 18-DEC-2003
     Route: 048
     Dates: start: 20000814
  5. M.V.I. [Concomitant]
     Dosage: DOSAGE FORM: TABLET
     Route: 048
     Dates: start: 20000501
  6. TETANUS [Concomitant]
     Route: 030
     Dates: start: 20030604, end: 20030604

REACTIONS (1)
  - BLOOD CREATINE PHOSPHOKINASE INCREASED [None]
